FAERS Safety Report 24611204 (Version 4)
Quarter: 2025Q2

REPORT INFORMATION
  Report Type: Report from Study
  Country: US (occurrence: US)
  Receive Date: 20241113
  Receipt Date: 20250428
  Transmission Date: 20250717
  Serious: Yes (Hospitalization, Disabling, Other)
  Sender: ABBVIE
  Company Number: US-ABBVIE-5995623

PATIENT
  Age: 84 Year
  Sex: Male
  Weight: 77.11 kg

DRUGS (7)
  1. HUMIRA [Suspect]
     Active Substance: ADALIMUMAB
     Indication: Colitis ulcerative
     Dosage: CITRATE FREE
     Route: 058
     Dates: start: 20230519
  2. Spironolactone dc [Concomitant]
     Indication: Bladder disorder
  3. Finasteride eg [Concomitant]
     Indication: Bladder disorder
  4. LOSARTAN [Concomitant]
     Active Substance: LOSARTAN
     Indication: Blood pressure abnormal
  5. FUROSEMIDE [Concomitant]
     Active Substance: FUROSEMIDE
     Indication: Bladder disorder
  6. ELIQUIS [Concomitant]
     Active Substance: APIXABAN
     Indication: Cardiac disorder
  7. TAMSULOSIN [Concomitant]
     Active Substance: TAMSULOSIN
     Indication: Bladder disorder

REACTIONS (12)
  - Bradycardia [Recovered/Resolved]
  - Memory impairment [Unknown]
  - Transient ischaemic attack [Unknown]
  - Dementia [Not Recovered/Not Resolved]
  - Cardiac disorder [Not Recovered/Not Resolved]
  - Posture abnormal [Recovering/Resolving]
  - Loss of consciousness [Recovered/Resolved]
  - Diarrhoea [Not Recovered/Not Resolved]
  - Bradycardia [Recovered/Resolved]
  - Loss of consciousness [Recovering/Resolving]
  - Dehydration [Recovered/Resolved]
  - Transient ischaemic attack [Recovered/Resolved]

NARRATIVE: CASE EVENT DATE: 20240101
